FAERS Safety Report 16276385 (Version 1)
Quarter: 2019Q2

REPORT INFORMATION
  Report Type: Spontaneous
  Country: DE (occurrence: DE)
  Receive Date: 20190505
  Receipt Date: 20190505
  Transmission Date: 20190711
  Serious: Yes (Other)
  Sender: FDA-Public Use
  Company Number: PHHY2019DE100490

PATIENT
  Sex: Female
  Weight: 2.52 kg

DRUGS (8)
  1. TAVOR (LORAZEPAM) [Suspect]
     Active Substance: LORAZEPAM
     Indication: EXPOSURE VIA BREAST MILK
     Dosage: MATERNAL DOSE: 1 MG QD ON DEMAND
     Route: 063
  2. CLOBAZAM. [Suspect]
     Active Substance: CLOBAZAM
     Indication: EXPOSURE VIA BREAST MILK
     Dosage: UNK
     Route: 063
  3. LEVETIRACETAM. [Suspect]
     Active Substance: LEVETIRACETAM
     Indication: EXPOSURE VIA BREAST MILK
     Dosage: MATERNAL DOSE: 300 MG QD
     Route: 063
  4. LEVETIRACETAM. [Suspect]
     Active Substance: LEVETIRACETAM
     Indication: FOETAL EXPOSURE DURING PREGNANCY
  5. TOPIRAMATE. [Suspect]
     Active Substance: TOPIRAMATE
     Indication: EXPOSURE VIA BREAST MILK
     Dosage: MATERNAL DOSE:250 MG QD
     Route: 063
  6. TOPIRAMATE. [Suspect]
     Active Substance: TOPIRAMATE
     Indication: FOETAL EXPOSURE DURING PREGNANCY
  7. CLOBAZAM. [Suspect]
     Active Substance: CLOBAZAM
     Indication: FOETAL EXPOSURE DURING PREGNANCY
  8. TAVOR (LORAZEPAM) [Suspect]
     Active Substance: LORAZEPAM
     Indication: FOETAL EXPOSURE DURING PREGNANCY

REACTIONS (3)
  - Hypopnoea [Recovered/Resolved]
  - Foetal exposure during pregnancy [Unknown]
  - Apnoea [Recovered/Resolved]
